FAERS Safety Report 5195367-3 (Version None)
Quarter: 2006Q4

REPORT INFORMATION
  Report Type: 
  Country: None (occurrence: None)
  Receive Date: 20061229
  Receipt Date: 20061219
  Transmission Date: 20070319
  Serious: Yes (Other)
  Sender: FDA-Public Use
  Company Number: AT-PFIZER INC-2006155265

PATIENT
  Age: 78 Year
  Sex: Male
  Weight: 76 kg

DRUGS (6)
  1. ZYVOXID TABLET [Suspect]
     Indication: PNEUMONIA
     Route: 048
     Dates: start: 20061001, end: 20061112
  2. COSAAR PLUS [Concomitant]
     Dosage: TEXT:1 TABLET
     Route: 048
  3. COZAAR [Concomitant]
     Dosage: DAILY DOSE:50MG
     Route: 048
  4. MARCUMAR [Concomitant]
     Route: 048
  5. NEXIUM [Concomitant]
     Dosage: DAILY DOSE:20MG
     Route: 048
  6. SOTALOL HCL [Concomitant]
     Dosage: DAILY DOSE:80MG

REACTIONS (1)
  - MICROCYTIC ANAEMIA [None]
